FAERS Safety Report 17791608 (Version 1)
Quarter: 2020Q2

REPORT INFORMATION
  Report Type: Spontaneous
  Country: JP (occurrence: JP)
  Receive Date: 20200515
  Receipt Date: 20200515
  Transmission Date: 20200714
  Serious: Yes (Hospitalization, Other)
  Sender: FDA-Public Use
  Company Number: JP-TEVA-2020-JP-1236691

PATIENT
  Age: 74 Year
  Sex: Male

DRUGS (9)
  1. PREDNISOLONE. [Concomitant]
     Active Substance: PREDNISOLONE
     Route: 065
  2. OLMESARTAN [Concomitant]
     Active Substance: OLMESARTAN
     Route: 065
  3. CELECOXIB. [Concomitant]
     Active Substance: CELECOXIB
     Route: 065
  4. METHOTREXATE. [Suspect]
     Active Substance: METHOTREXATE
     Indication: RHEUMATOID ARTHRITIS
     Route: 048
  5. IGURATIMOD [Concomitant]
     Active Substance: IGURATIMOD
     Route: 065
  6. FAMOTIDINE. [Concomitant]
     Active Substance: FAMOTIDINE
     Route: 065
  7. AMLODIPINE [Concomitant]
     Active Substance: AMLODIPINE BESYLATE
     Route: 065
  8. ETOPOSIDE. [Suspect]
     Active Substance: ETOPOSIDE
     Indication: HAEMOPHAGOCYTIC LYMPHOHISTIOCYTOSIS
     Route: 065
  9. PEMBROLIZUMAB. [Suspect]
     Active Substance: PEMBROLIZUMAB
     Indication: LUNG ADENOCARCINOMA STAGE III
     Route: 065

REACTIONS (6)
  - Haemophagocytic lymphohistiocytosis [Recovering/Resolving]
  - Rheumatoid arthritis [Recovered/Resolved]
  - Coagulopathy [Recovering/Resolving]
  - Bone marrow failure [Unknown]
  - Escherichia infection [Recovering/Resolving]
  - Febrile neutropenia [Recovering/Resolving]
